FAERS Safety Report 14494632 (Version 2)
Quarter: 2018Q1

REPORT INFORMATION
  Report Type: Report from Study
  Country: None (occurrence: US)
  Receive Date: 20180206
  Receipt Date: 20180214
  Transmission Date: 20180509
  Serious: Yes (Hospitalization, Other)
  Sender: FDA-Public Use
  Company Number: US-ABBVIE-18P-163-2244421-00

PATIENT
  Age: 75 Year
  Sex: Male

DRUGS (1)
  1. VENCLEXTA [Suspect]
     Active Substance: VENETOCLAX
     Indication: PRODUCT USED FOR UNKNOWN INDICATION
     Route: 048
     Dates: start: 20180120

REACTIONS (7)
  - Infection [Not Recovered/Not Resolved]
  - Pyrexia [Not Recovered/Not Resolved]
  - Platelet transfusion [Unknown]
  - Chills [Not Recovered/Not Resolved]
  - Transfusion [Unknown]
  - Constipation [Recovering/Resolving]
  - Platelet transfusion [Unknown]

NARRATIVE: CASE EVENT DATE: 20180130
